FAERS Safety Report 21972624 (Version 2)
Quarter: 2023Q1

REPORT INFORMATION
  Report Type: Spontaneous
  Country: BG (occurrence: BG)
  Receive Date: 20230209
  Receipt Date: 20230209
  Transmission Date: 20230417
  Serious: Yes (Death)
  Sender: FDA-Public Use
  Company Number: BG-PFIZER INC-PV202300020863

PATIENT
  Age: 47 Month
  Sex: Male

DRUGS (4)
  1. METHYLPREDNISOLONE [Suspect]
     Active Substance: METHYLPREDNISOLONE
     Indication: Infectious mononucleosis
     Dosage: 1 MG/KG
  2. METHYLPREDNISOLONE [Suspect]
     Active Substance: METHYLPREDNISOLONE
     Indication: Haemophagocytic lymphohistiocytosis
  3. ISOPRINOSINE [Suspect]
     Active Substance: INOSINE PRANOBEX
     Dosage: UNK
  4. AMIKACIN [Suspect]
     Active Substance: AMIKACIN
     Dosage: UNK

REACTIONS (2)
  - Off label use [Fatal]
  - Drug ineffective for unapproved indication [Fatal]
